FAERS Safety Report 23257099 (Version 1)
Quarter: 2023Q4

REPORT INFORMATION
  Report Type: Spontaneous
  Country: NL (occurrence: NL)
  Receive Date: 20231204
  Receipt Date: 20231204
  Transmission Date: 20240109
  Serious: Yes (Hospitalization)
  Sender: FDA-Public Use
  Company Number: NL-LRB-00930673

PATIENT
  Age: 56 Year
  Sex: Female

DRUGS (1)
  1. ELETRIPTAN [Suspect]
     Active Substance: ELETRIPTAN
     Indication: Migraine
     Dosage: 40 MILLIGRAM,1 PIECE
     Route: 065
     Dates: start: 20230101, end: 20231113

REACTIONS (1)
  - Stress cardiomyopathy [Recovering/Resolving]
